FAERS Safety Report 8173000-6 (Version None)
Quarter: 2012Q1

REPORT INFORMATION
  Report Type: 
  Country: None (occurrence: None)
  Receive Date: 20120223
  Receipt Date: 20120208
  Transmission Date: 20120608
  Serious: Yes (Hospitalization)
  Sender: FDA-Public Use
  Company Number: 2011HGS-002850

PATIENT
  Age: 26 Year
  Sex: Female
  Weight: 90.7194 kg

DRUGS (9)
  1. CELLCEPT (MYCOPHENOLATE MOFETIL) (MYCOPHENOLATE MOFETIL) [Concomitant]
  2. PLAQUENIL (HYDROXYCLOROQUINE SULFATE) (HYDROXYCLOROQUINE SULFATE) [Concomitant]
  3. BENLYSTA [Suspect]
     Indication: SYSTEMIC LUPUS ERYTHEMATOSUS
     Dosage: 10 MG/KG, 1 IN 28 D, INTRAVENOUS DRIP
     Route: 041
     Dates: start: 20110627, end: 20111208
  4. PREDNISONE [Concomitant]
  5. IMURAN [Concomitant]
  6. NORVASC [Concomitant]
  7. ABILIFY (ARIPIPRAZOLE) (ARIPIPRAZOLE) [Concomitant]
  8. MOTRIN [Concomitant]
  9. FLEXERIL (CYCLOBENZAPRINE HYDROCHLORIDE) (CYCLOBENZAPRINE HYDROCHLORID [Concomitant]

REACTIONS (12)
  - PERICARDITIS [None]
  - DEVICE RELATED INFECTION [None]
  - OROPHARYNGEAL PAIN [None]
  - SENSATION OF FOREIGN BODY [None]
  - CHEST PAIN [None]
  - HEADACHE [None]
  - DYSPHAGIA [None]
  - ARTHRALGIA [None]
  - DRY MOUTH [None]
  - PRODUCTIVE COUGH [None]
  - DYSPNOEA [None]
  - CHEST DISCOMFORT [None]
